FAERS Safety Report 7783404-9 (Version None)
Quarter: 2011Q3

REPORT INFORMATION
  Report Type: 
  Country: None (occurrence: None)
  Receive Date: 20110926
  Receipt Date: 20110919
  Transmission Date: 20111222
  Serious: Yes (Death)
  Sender: FDA-Public Use
  Company Number: LEO-2011-00757

PATIENT
  Age: 29 Year
  Sex: Male
  Weight: 95 kg

DRUGS (1)
  1. INNOHEP [Suspect]
     Indication: EMBOLISM VENOUS
     Dosage: 18000 IU/KG (18000 IU/KG, 1 IN 1 D), SUBCUTANEOUS
     Route: 058
     Dates: start: 20110518

REACTIONS (4)
  - TESTICULAR GERM CELL CANCER [None]
  - SUDDEN DEATH [None]
  - NEOPLASM PROGRESSION [None]
  - DYSPNOEA [None]
